FAERS Safety Report 5216347-5 (Version None)
Quarter: 2007Q1

REPORT INFORMATION
  Report Type: 
  Country: None (occurrence: None)
  Receive Date: 20061122
  Receipt Date: 20060719
  Transmission Date: 20070707
  Serious: Yes (Other)
  Sender: FDA-Public Use
  Company Number: 2006088938

PATIENT
  Sex: 0

DRUGS (2)
  1. LIPITOR [Suspect]
     Indication: DRUG USE FOR UNKNOWN INDICATION
  2. TAMOXIFEN CITRATE [Concomitant]

REACTIONS (1)
  - GLAUCOMA [None]
